FAERS Safety Report 16116045 (Version 8)
Quarter: 2022Q3

REPORT INFORMATION
  Report Type: Report from Study
  Country: JP (occurrence: JP)
  Receive Date: 20190326
  Receipt Date: 20220930
  Transmission Date: 20221027
  Serious: Yes (Other)
  Sender: FDA-Public Use
  Company Number: JP-VIIV HEALTHCARE ULC-JP2019JPN011262

PATIENT

DRUGS (12)
  1. DOLUTEGRAVIR [Suspect]
     Active Substance: DOLUTEGRAVIR
     Indication: HIV infection
     Dosage: 50 MG, 1D
     Route: 048
     Dates: start: 20150826, end: 20190401
  2. EDURANT [Suspect]
     Active Substance: RILPIVIRINE HYDROCHLORIDE
     Indication: HIV infection
     Dosage: 1 DF, 1D
     Route: 048
     Dates: start: 20150826, end: 20190401
  3. NORVIR [Suspect]
     Active Substance: RITONAVIR
     Indication: HIV infection
     Dosage: 1 DF, 1D
     Route: 048
     Dates: start: 20150826, end: 20170216
  4. DARUNAVIR [Suspect]
     Active Substance: DARUNAVIR
     Indication: HIV infection
     Dosage: 1 DF, 1D
     Route: 048
     Dates: start: 20150826, end: 20170216
  5. PREZCOBIX [Suspect]
     Active Substance: COBICISTAT\DARUNAVIR ETHANOLATE
     Indication: HIV infection
     Dosage: 1 DF, 1D
     Route: 048
     Dates: start: 20170217
  6. URSODIOL [Concomitant]
     Active Substance: URSODIOL
     Dosage: UNK
     Dates: start: 20150821, end: 20150827
  7. PREDNISOLONE [Concomitant]
     Active Substance: PREDNISOLONE
     Dosage: UNK
     Dates: start: 20150820, end: 20150827
  8. VALGANCICLOVIR [Concomitant]
     Active Substance: VALGANCICLOVIR
     Dosage: UNK
     Dates: start: 20150826, end: 20150916
  9. DAIPHEN COMBINATION TABLETS [Concomitant]
     Indication: Prophylaxis
     Dosage: UNK
     Dates: start: 20150807, end: 20150827
  10. DAIPHEN COMBINATION TABLETS [Concomitant]
     Dosage: UNK
     Dates: start: 20150828, end: 20160517
  11. RILMAZAFONE HYDROCHLORIDE [Concomitant]
     Active Substance: RILMAZAFONE HYDROCHLORIDE
     Dosage: UNK
     Dates: start: 20151028, end: 20151217
  12. JULUCA [Concomitant]
     Active Substance: DOLUTEGRAVIR SODIUM\RILPIVIRINE HYDROCHLORIDE
     Indication: HIV infection
     Dosage: 1 DF, 1D
     Route: 048
     Dates: start: 20190401

REACTIONS (9)
  - Fungal infection [Recovering/Resolving]
  - Folliculitis [Recovering/Resolving]
  - Arthralgia [Recovering/Resolving]
  - Hypertension [Not Recovered/Not Resolved]
  - Pain in extremity [Not Recovered/Not Resolved]
  - Hyperuricaemia [Recovering/Resolving]
  - Dyslipidaemia [Recovering/Resolving]
  - Tinea pedis [Recovering/Resolving]
  - Asthenopia [Not Recovered/Not Resolved]

NARRATIVE: CASE EVENT DATE: 20150904
